FAERS Safety Report 9909833 (Version 1)
Quarter: 2014Q1

REPORT INFORMATION
  Report Type: Spontaneous
  Country: US (occurrence: None)
  Receive Date: 20140218
  Receipt Date: 20140218
  Transmission Date: 20141002
  Serious: No
  Sender: FDA-Public Use
  Company Number: None

PATIENT
  Age: 48 Year
  Sex: Male
  Weight: 131.54 kg

DRUGS (1)
  1. SUBOXONE [Suspect]
     Dosage: 1  12 MG FILM  TWICE DAILY  TAKEN UNDER THE TONGUE
     Route: 060
     Dates: start: 20111001, end: 20140213

REACTIONS (3)
  - Stomatitis [None]
  - Oral discomfort [None]
  - Oral pain [None]
